FAERS Safety Report 21757271 (Version 2)
Quarter: 2023Q1

REPORT INFORMATION
  Report Type: Report from Study
  Country: BR (occurrence: BR)
  Receive Date: 20221220
  Receipt Date: 20230118
  Transmission Date: 20230417
  Serious: No
  Sender: FDA-Public Use
  Company Number: BR-ABBVIE-22K-020-4536945-00

PATIENT
  Sex: Female
  Weight: 57 kg

DRUGS (2)
  1. RINVOQ [Suspect]
     Active Substance: UPADACITINIB
     Indication: Dermatitis atopic
     Dosage: 15 MILLIGRAM?THE EVENT START DATE FOR ALL EVENTS SHOULD BE 2022 AND CESSATION DATE FOR WEIGHT LOS...
     Route: 048
     Dates: start: 20220708, end: 202208
  2. RINVOQ [Suspect]
     Active Substance: UPADACITINIB
     Indication: Dermatitis atopic
     Dosage: 15 MILLIGRAM
     Route: 048
     Dates: start: 20220901

REACTIONS (6)
  - Hyperhidrosis [Unknown]
  - Dermatitis atopic [Not Recovered/Not Resolved]
  - Hypersensitivity [Unknown]
  - Weight increased [Unknown]
  - Weight decreased [Recovered/Resolved]
  - Paraesthesia [Recovered/Resolved]
